FAERS Safety Report 7978296-9 (Version None)
Quarter: 2011Q4

REPORT INFORMATION
  Report Type: 
  Country: None (occurrence: None)
  Receive Date: 20111214
  Receipt Date: 20111208
  Transmission Date: 20120403
  Serious: Yes (Other)
  Sender: FDA-Public Use
  Company Number: DE-PFIZER INC-2011300584

PATIENT
  Age: 24 Year
  Sex: Male

DRUGS (2)
  1. ENBREL [Suspect]
     Indication: ANKYLOSING SPONDYLITIS
     Dosage: 50 MG, WEEKLY
     Route: 058
     Dates: start: 20110304, end: 20110101
  2. CLINDAMYCIN HCL [Suspect]
     Indication: SINUSITIS
     Dosage: UNK
     Dates: start: 20110101

REACTIONS (2)
  - PSEUDOMEMBRANOUS COLITIS [None]
  - SINUSITIS [None]
